FAERS Safety Report 25869378 (Version 1)
Quarter: 2025Q4

REPORT INFORMATION
  Report Type: Spontaneous
  Country: GB (occurrence: GB)
  Receive Date: 20251001
  Receipt Date: 20251001
  Transmission Date: 20260117
  Serious: Yes (Other)
  Sender: PFIZER
  Company Number: None

PATIENT
  Age: 83 Year
  Sex: Male
  Weight: 71 kg

DRUGS (1)
  1. ENCORAFENIB [Suspect]
     Active Substance: ENCORAFENIB
     Indication: Lung neoplasm malignant
     Dosage: 4 DF, 1/DAY (QD) IN THE MORNING
     Dates: start: 20250918, end: 20250919

REACTIONS (4)
  - Decreased appetite [Recovering/Resolving]
  - Restlessness [Recovering/Resolving]
  - Fatigue [Recovering/Resolving]
  - Constipation [Not Recovered/Not Resolved]

NARRATIVE: CASE EVENT DATE: 20250918
